FAERS Safety Report 10168841 (Version 1)
Quarter: 2014Q2

REPORT INFORMATION
  Report Type: Spontaneous
  Country: US (occurrence: None)
  Receive Date: 20140512
  Receipt Date: 20140512
  Transmission Date: 20141212
  Serious: Yes (Life-Threatening)
  Sender: FDA-Public Use
  Company Number: None

PATIENT
  Age: 60 Year
  Sex: Male
  Weight: 95.7 kg

DRUGS (1)
  1. ONDANSETRON [Suspect]
     Indication: NAUSEA
     Route: 042
     Dates: start: 20140413, end: 20140413

REACTIONS (8)
  - Electrocardiogram QT prolonged [None]
  - Hypokalaemia [None]
  - Pulse absent [None]
  - Ventricular fibrillation [None]
  - Cardiac arrest [None]
  - Cardio-respiratory arrest [None]
  - Bundle branch block right [None]
  - Bundle branch block left [None]
